FAERS Safety Report 13297908 (Version 1)
Quarter: 2017Q1

REPORT INFORMATION
  Report Type: Spontaneous
  Country: TR (occurrence: TR)
  Receive Date: 20170306
  Receipt Date: 20170306
  Transmission Date: 20170428
  Serious: Yes (Death)
  Sender: FDA-Public Use
  Company Number: TR-LANNETT COMPANY, INC.-TR-2017LAN000606

PATIENT
  Age: 34 Year
  Sex: Female

DRUGS (6)
  1. FLURBIPROFEN. [Suspect]
     Active Substance: FLURBIPROFEN
     Indication: MENTAL DISORDER
     Dosage: UNK
  2. CLOZAPIN [Suspect]
     Active Substance: CLOZAPINE
     Indication: MENTAL DISORDER
     Dosage: UNK
  3. PROPRANOLOL [Suspect]
     Active Substance: PROPRANOLOL HYDROCHLORIDE
     Indication: MENTAL DISORDER
     Dosage: UNK
  4. HALOPERIDOL LACTATE. [Suspect]
     Active Substance: HALOPERIDOL LACTATE
     Indication: MENTAL DISORDER
     Dosage: UNK
  5. VALPROIC ACID. [Suspect]
     Active Substance: VALPROIC ACID
     Indication: MENTAL DISORDER
     Dosage: UNK
  6. CHLORPHENIRAMIN [Suspect]
     Active Substance: CHLORPHENIRAMINE MALEATE
     Indication: MENTAL DISORDER
     Dosage: UNK

REACTIONS (2)
  - Eosinophilic myocarditis [Fatal]
  - Cardiac arrest [Fatal]
